FAERS Safety Report 6910499-4 (Version None)
Quarter: 2010Q3

REPORT INFORMATION
  Report Type: 
  Country: None (occurrence: None)
  Receive Date: 20100806
  Receipt Date: 20100726
  Transmission Date: 20110219
  Serious: Yes (Hospitalization, Other)
  Sender: FDA-Public Use
  Company Number: PHHY2010US49038

PATIENT
  Age: 19 Year
  Sex: Female

DRUGS (6)
  1. PARLODEL [Suspect]
  2. FENTANYL [Concomitant]
  3. PROPOFOL [Concomitant]
  4. BETA BLOCKING AGENTS [Concomitant]
  5. IMMU-G [Concomitant]
     Route: 042
  6. METHYLPREDNISOLONE [Concomitant]
     Dosage: 1 G FOR 5 DAYS

REACTIONS (2)
  - CAESAREAN SECTION [None]
  - DRUG EXPOSURE DURING PREGNANCY [None]
